FAERS Safety Report 23820146 (Version 1)
Quarter: 2024Q2

REPORT INFORMATION
  Report Type: Spontaneous
  Country: US (occurrence: None)
  Receive Date: 20240503
  Receipt Date: 20240503
  Transmission Date: 20240715
  Serious: Yes (Death, Life-Threatening, Hospitalization)
  Sender: FDA-Public Use
  Company Number: None

PATIENT
  Age: 54 Year
  Sex: Female
  Weight: 77 kg

DRUGS (3)
  1. ELIQUIS [Suspect]
     Active Substance: APIXABAN
     Indication: Pulmonary embolism
     Dosage: FREQUENCY : TWICE A DAY;?
     Route: 048
     Dates: start: 20240411, end: 20240417
  2. PREZISTA [Concomitant]
     Active Substance: DARUNAVIR ETHANOLATE
     Dates: start: 20200701, end: 20240417
  3. RITONAVIR [Concomitant]
     Active Substance: RITONAVIR
     Dates: start: 20200701, end: 20240417

REACTIONS (5)
  - Drug interaction [None]
  - Haematemesis [None]
  - Catheter site haemorrhage [None]
  - Haemoglobin decreased [None]
  - Shock haemorrhagic [None]

NARRATIVE: CASE EVENT DATE: 20240411
